FAERS Safety Report 19013423 (Version 2)
Quarter: 2022Q2

REPORT INFORMATION
  Report Type: Report from Study
  Country: BE (occurrence: BE)
  Receive Date: 20210316
  Receipt Date: 20220627
  Transmission Date: 20220721
  Serious: Yes (Other)
  Sender: FDA-Public Use
  Company Number: BE-INCYTE CORPORATION-2020IN006446

PATIENT
  Age: 42 Year
  Sex: Male

DRUGS (1)
  1. PONATINIB [Suspect]
     Active Substance: PONATINIB
     Indication: Philadelphia positive acute lymphocytic leukaemia
     Dosage: UNK
     Route: 048

REACTIONS (7)
  - Graft versus host disease [Not Recovered/Not Resolved]
  - Weight increased [Recovered/Resolved]
  - Endocrine disorder [Recovered/Resolved]
  - Hypercalcaemia [Recovered/Resolved]
  - Bronchitis [Recovered/Resolved]
  - Diastolic hypertension [Not Recovered/Not Resolved]
  - Hypertension [Not Recovered/Not Resolved]

NARRATIVE: CASE EVENT DATE: 20200506
